FAERS Safety Report 5856123-3 (Version None)
Quarter: 2008Q3

REPORT INFORMATION
  Report Type: 
  Country: None (occurrence: None)
  Receive Date: 20080821
  Receipt Date: 20080821
  Transmission Date: 20090109
  Serious: Yes (Life-Threatening, Hospitalization, Disabling)
  Sender: FDA-Public Use
  Company Number: None

PATIENT
  Age: 12 Month
  Sex: Female
  Weight: 10 kg

DRUGS (2)
  1. SEVOFLURANE [Suspect]
  2. SODASORB [Suspect]

REACTIONS (8)
  - BRAIN INJURY [None]
  - CARBON MONOXIDE POISONING [None]
  - CARBOXYHAEMOGLOBIN INCREASED [None]
  - CEREBRAL ISCHAEMIA [None]
  - CIRCULATORY COLLAPSE [None]
  - NERVOUS SYSTEM DISORDER [None]
  - NO THERAPEUTIC RESPONSE [None]
  - NODAL ARRHYTHMIA [None]
